FAERS Safety Report 6536506-9 (Version None)
Quarter: 2010Q1

REPORT INFORMATION
  Report Type: 
  Country: None (occurrence: None)
  Receive Date: 20100105
  Receipt Date: 20091228
  Transmission Date: 20100710
  Serious: Yes (Hospitalization)
  Sender: FDA-Public Use
  Company Number: 2009029300

PATIENT
  Age: 29 Year
  Sex: Female
  Weight: 72 kg

DRUGS (1)
  1. MODAFINIL [Suspect]
     Indication: NARCOLEPSY
     Dosage: (1 DOSAGE FORMS, ONCE), ORAL
     Route: 048
     Dates: start: 20091128, end: 20091128

REACTIONS (2)
  - BACK PAIN [None]
  - HYPERTENSIVE CRISIS [None]
